FAERS Safety Report 8188721-9 (Version None)
Quarter: 2012Q1

REPORT INFORMATION
  Report Type: 
  Country: None (occurrence: None)
  Receive Date: 20120306
  Receipt Date: 20120229
  Transmission Date: 20120608
  Serious: Yes (Other)
  Sender: FDA-Public Use
  Company Number: US-BAYER-2011-109660

PATIENT
  Age: 68 Year
  Sex: Female

DRUGS (7)
  1. NEXAVAR [Suspect]
     Indication: HEPATIC NEOPLASM MALIGNANT
     Dosage: 400 MG, BID (2 TABLETS TWICE A DAY)
     Route: 048
  2. MULTI-VITAMINS [Concomitant]
     Dosage: UNK
  3. NEXAVAR [Suspect]
     Dosage: 400 MG, BID (2 TABLETS TWICE A DAY)
     Route: 048
     Dates: start: 20120111
  4. ATENOLOL [Concomitant]
     Dosage: 25 MG, UNK
  5. IRON [Concomitant]
     Dosage: 18 MG, UNK
  6. DIOVAN HCT [Concomitant]
     Dosage: 320/12.5
  7. ASPIRIN [Concomitant]
     Dosage: 81 MG, UNK

REACTIONS (8)
  - WEIGHT DECREASED [None]
  - SKIN IRRITATION [None]
  - GLOSSITIS [None]
  - PAIN IN EXTREMITY [None]
  - SKIN FISSURES [None]
  - STOMATITIS [None]
  - APHAGIA [None]
  - SKIN EXFOLIATION [None]
